FAERS Safety Report 8386721-7 (Version None)
Quarter: 2012Q2

REPORT INFORMATION
  Report Type: 
  Country: None (occurrence: None)
  Receive Date: 20120525
  Receipt Date: 20120514
  Transmission Date: 20120825
  Serious: Yes (Death)
  Sender: FDA-Public Use
  Company Number: US-SANOFI-AVENTIS-2012SA023497

PATIENT
  Age: 72 Year
  Sex: Male
  Weight: 67.57 kg

DRUGS (28)
  1. FAMOTIDINE [Concomitant]
     Dates: start: 20090101, end: 20120324
  2. ALOXI [Concomitant]
     Indication: PREMEDICATION
     Dates: start: 20120320, end: 20120320
  3. CALCIUM/VITAMIN D [Concomitant]
  4. COREG [Concomitant]
     Indication: HYPERTENSION
     Dates: start: 20110131, end: 20120324
  5. DEXAMETHASONE [Concomitant]
     Dates: start: 20120320, end: 20120321
  6. DOCETAXEL [Suspect]
     Indication: NON-SMALL CELL LUNG CANCER STAGE IV
     Dosage: EVERY 3 WEEKS, DAY 1 OF 21 DAY CYCLE
     Route: 041
     Dates: start: 20120320, end: 20120320
  7. CLOBETASOL PROPIONATE [Concomitant]
     Indication: RASH
     Dates: start: 20090515, end: 20120324
  8. CITALOPRAM HYDROBROMIDE [Concomitant]
     Indication: DEPRESSION
     Dates: start: 20110623, end: 20120324
  9. PSEUDOEPHEDRINE HYDROCHLORIDE AND DIPHENHYDRAMINE HYDROCHLORIDE AND PA [Concomitant]
     Indication: PREMEDICATION
     Dates: start: 20120320, end: 20120320
  10. ATIVAN [Concomitant]
     Indication: ANXIETY
     Dates: start: 20110119, end: 20120324
  11. AMLODIPINE BESYLATE [Concomitant]
     Indication: HYPERTENSION
     Dates: start: 20050101, end: 20120324
  12. XANAX [Concomitant]
     Indication: ANXIETY
     Dates: start: 20101213, end: 20120324
  13. DEXAMETHASONE [Concomitant]
     Indication: PREMEDICATION
     Dates: start: 20120319, end: 20120321
  14. AMBIEN [Concomitant]
     Indication: INSOMNIA
     Dates: start: 20110629, end: 20120324
  15. ESOMEPRAZOLE MAGNESIUM [Concomitant]
     Dates: start: 20110916, end: 20120324
  16. CLOTRIMAZOLE [Concomitant]
     Indication: RASH
     Dates: start: 20101026, end: 20120324
  17. TAMSULOSIN HYDROCHLORIDE [Concomitant]
     Indication: URINARY RETENTION
     Dates: start: 20020101, end: 20120324
  18. BLINDED THERAPY [Suspect]
     Indication: NON-SMALL CELL LUNG CANCER STAGE IV
     Dosage: EVERY 3 WEEKS, DAY 1 OF 21 DAY CYCLE
     Route: 042
     Dates: start: 20120320, end: 20120320
  19. CENTRUM [Concomitant]
     Dates: start: 20051115, end: 20120324
  20. ASPIRIN [Concomitant]
     Indication: CARDIOVASCULAR EVENT PROPHYLAXIS
     Dates: start: 20051115, end: 20120324
  21. LOSARTAN POTASSIUM [Concomitant]
     Indication: HYPERTENSION
     Dates: start: 20110629, end: 20120324
  22. HYDROCHLOROTHIAZIDE [Concomitant]
     Indication: HYPERTENSION
     Dates: start: 20050101, end: 20120324
  23. HYDROCORTISONE [Concomitant]
     Indication: RASH
     Dates: start: 20100902, end: 20120324
  24. DENOSUMAB [Concomitant]
     Dates: start: 20120320, end: 20120320
  25. ZYRTEC [Concomitant]
     Dates: start: 20110915, end: 20120324
  26. NASAL SALINE [Concomitant]
     Indication: PROPHYLAXIS
     Dates: start: 20110102, end: 20120324
  27. TUSSIONEX [Concomitant]
     Indication: COUGH
     Dates: start: 20101124, end: 20120324
  28. BENAZEPRIL HYDROCHLORIDE [Concomitant]
     Indication: HYPERTENSION
     Dates: start: 20111105, end: 20120324

REACTIONS (1)
  - CARDIAC ARREST [None]
